FAERS Safety Report 16387094 (Version 1)
Quarter: 2019Q2

REPORT INFORMATION
  Report Type: Spontaneous
  Country: US (occurrence: US)
  Receive Date: 20190604
  Receipt Date: 20190604
  Transmission Date: 20190711
  Serious: No
  Sender: FDA-Public Use
  Company Number: US-GLAXOSMITHKLINE-US2019AMR089862

PATIENT
  Age: 33 Year
  Sex: Female

DRUGS (1)
  1. ALBUTEROL SULFATE INHALATION POWDER [Suspect]
     Active Substance: ALBUTEROL SULFATE
     Indication: ASTHMA
     Dosage: 2 PUFF(S), UNK
     Route: 055

REACTIONS (5)
  - Chest discomfort [Recovered/Resolved]
  - Cough [Recovering/Resolving]
  - Wheezing [Recovering/Resolving]
  - Drug ineffective [Unknown]
  - Nasopharyngitis [Unknown]
